FAERS Safety Report 11317065 (Version 1)
Quarter: 2015Q3

REPORT INFORMATION
  Report Type: Spontaneous
  Country: US (occurrence: None)
  Receive Date: 20150727
  Receipt Date: 20150727
  Transmission Date: 20151125
  Serious: Yes (Disabling)
  Sender: FDA-Public Use
  Company Number: None

PATIENT
  Age: 60 Year
  Sex: Female
  Weight: 72.58 kg

DRUGS (16)
  1. KCL [Concomitant]
     Active Substance: POTASSIUM CHLORIDE
  2. LEVOTHYROXIN [Concomitant]
     Active Substance: LEVOTHYROXINE
  3. ALBUTEROL. [Concomitant]
     Active Substance: ALBUTEROL
  4. ALPRAZOLAM. [Concomitant]
     Active Substance: ALPRAZOLAM
  5. CLARITIN-D 12 HOUR [Concomitant]
     Active Substance: LORATADINE\PSEUDOEPHEDRINE SULFATE
  6. GABAPENTIN. [Concomitant]
     Active Substance: GABAPENTIN
  7. VALSARTIN HCTZ [Concomitant]
  8. TYLENOL [Concomitant]
     Active Substance: ACETAMINOPHEN
  9. SOMA [Concomitant]
     Active Substance: CARISOPRODOL
  10. MVI [Concomitant]
     Active Substance: VITAMINS
  11. TOPAMAX [Concomitant]
     Active Substance: TOPIRAMATE
  12. PROAIR HFA [Suspect]
     Active Substance: ALBUTEROL SULFATE
     Indication: ASTHMA
     Dosage: 1-2 PUFFS Q 6 PRN
     Route: 055
     Dates: start: 20150501, end: 20150724
  13. SINGULAIR [Concomitant]
     Active Substance: MONTELUKAST SODIUM
  14. WELLBUTRIN [Concomitant]
     Active Substance: BUPROPION HYDROCHLORIDE
  15. FOLIC ACID. [Concomitant]
     Active Substance: FOLIC ACID
  16. METHOTREXATE [Concomitant]
     Active Substance: METHOTREXATE

REACTIONS (3)
  - Drug ineffective [None]
  - Device malfunction [None]
  - Incorrect dose administered by device [None]

NARRATIVE: CASE EVENT DATE: 20150715
